FAERS Safety Report 26216742 (Version 1)
Quarter: 2025Q4

REPORT INFORMATION
  Report Type: Spontaneous
  Country: US (occurrence: US)
  Receive Date: 20251231
  Receipt Date: 20251231
  Transmission Date: 20260118
  Serious: No
  Sender: TRIS PHARMA, INC.
  Company Number: US-TRIS PHARMA, INC.-25US012199

PATIENT

DRUGS (1)
  1. CHLORPHENIRAMINE\HYDROCODONE [Suspect]
     Active Substance: CHLORPHENIRAMINE\HYDROCODONE
     Indication: Cough
     Dosage: UNK
     Route: 061

REACTIONS (2)
  - Expired product administered [Unknown]
  - Product availability issue [Unknown]
